FAERS Safety Report 8064627-0 (Version None)
Quarter: 2012Q1

REPORT INFORMATION
  Report Type: 
  Country: None (occurrence: None)
  Receive Date: 20120123
  Receipt Date: 20120119
  Transmission Date: 20120608
  Serious: Yes (Life-Threatening, Hospitalization)
  Sender: FDA-Public Use
  Company Number: DE-ASTRAZENECA-2012SE04050

PATIENT
  Age: 817 Month
  Sex: Male

DRUGS (6)
  1. SIMVASTATIN [Suspect]
     Route: 048
  2. ASPIRIN [Suspect]
     Route: 048
  3. ASPIRIN [Suspect]
     Dosage: 1 PACKAGE OF AN UNSPECIFIED SIZE
     Route: 048
  4. SEROQUEL [Suspect]
     Route: 048
  5. VALSARTAN [Suspect]
     Dosage: 160/5 MG
     Route: 048
  6. METOPROLOL [Suspect]
     Route: 048

REACTIONS (5)
  - DISORIENTATION [None]
  - SUICIDE ATTEMPT [None]
  - ACIDOSIS [None]
  - SOMNOLENCE [None]
  - SUICIDAL IDEATION [None]
